FAERS Safety Report 16378991 (Version 1)
Quarter: 2019Q2

REPORT INFORMATION
  Report Type: Report from Study
  Country: FR (occurrence: FR)
  Receive Date: 20190531
  Receipt Date: 20190531
  Transmission Date: 20190711
  Serious: Yes (Other)
  Sender: FDA-Public Use
  Company Number: FR-MYLANLABS-2019M1051309

PATIENT
  Age: 40 Year
  Sex: Female

DRUGS (6)
  1. CISPLATIN. [Concomitant]
     Active Substance: CISPLATIN
     Indication: ADRENOCORTICAL CARCINOMA
     Route: 065
  2. MITOTANE [Interacting]
     Active Substance: MITOTANE
     Indication: ADRENOCORTICAL CARCINOMA
     Dosage: FOR CYCLE 1
     Route: 065
  3. ETOPOSIDE. [Interacting]
     Active Substance: ETOPOSIDE
     Dosage: 200 MILLIGRAM/SQ. METER, QD
     Route: 042
  4. ETOPOSIDE. [Suspect]
     Active Substance: ETOPOSIDE
     Indication: ADRENOCORTICAL CARCINOMA
     Dosage: ON DAYS 1, 2 AND 3 OF EACH 3-WEEK CYCLE AT CYCLE 1
     Route: 042
  5. KETOCONAZOLE. [Interacting]
     Active Substance: KETOCONAZOLE
     Indication: PRODUCT USED FOR UNKNOWN INDICATION
     Route: 065
  6. MITOTANE [Interacting]
     Active Substance: MITOTANE
     Dosage: FOR CYCLE 2
     Route: 065

REACTIONS (3)
  - Drug interaction [Unknown]
  - Drug clearance decreased [Unknown]
  - Drug clearance increased [Unknown]
